FAERS Safety Report 6423100-3 (Version None)
Quarter: 2009Q4

REPORT INFORMATION
  Report Type: 
  Country: None (occurrence: None)
  Receive Date: 20091028
  Receipt Date: 20091014
  Transmission Date: 20100525
  Serious: Yes (Other)
  Sender: FDA-Public Use
  Company Number: 2009AL006597

PATIENT
  Age: 5 Year
  Sex: Male

DRUGS (4)
  1. FEVERALL [Suspect]
  2. IBUPROFEN TABLETS [Suspect]
  3. HISTAFED [Concomitant]
  4. DIPYRONE [Concomitant]

REACTIONS (3)
  - DRUG HYPERSENSITIVITY [None]
  - SKIN REACTION [None]
  - TOXIC EPIDERMAL NECROLYSIS [None]
